FAERS Safety Report 8121021-1 (Version None)
Quarter: 2012Q1

REPORT INFORMATION
  Report Type: 
  Country: None (occurrence: None)
  Receive Date: 20120208
  Receipt Date: 20120131
  Transmission Date: 20120608
  Serious: Yes (Hospitalization)
  Sender: FDA-Public Use
  Company Number: US-BAYER-2012-010263

PATIENT
  Age: 66 Year
  Sex: Female

DRUGS (9)
  1. IPRATROPIUM BROMIDE [Concomitant]
     Dosage: UP TO 4 X PER DAY, PRN
     Route: 049
  2. ASPIRIN [Concomitant]
     Dosage: 325 MG, QD
     Route: 048
  3. CARVEDILOL [Concomitant]
     Dosage: 12.5 MG, BID
     Route: 048
  4. AVELOX [Suspect]
     Indication: CHRONIC OBSTRUCTIVE PULMONARY DISEASE
     Dosage: 400 MG, QD
     Route: 048
  5. FOSINOPRIL SODIUM [Concomitant]
     Dosage: 20 MG, QD
     Route: 048
  6. SIMVASTATIN [Concomitant]
     Dosage: 80 MG, QD
     Route: 048
  7. FUROSEMIDE [Concomitant]
     Dosage: 20 MG, QD
     Route: 048
  8. PREDNISONE [Concomitant]
     Indication: CHRONIC OBSTRUCTIVE PULMONARY DISEASE
     Dosage: TAPER OF 40 MG
     Route: 048
  9. ALBUTEROL SULFATE [Concomitant]
     Dosage: UP TO 4 X PER DAY, PRN
     Route: 049

REACTIONS (2)
  - INAPPROPRIATE ANTIDIURETIC HORMONE SECRETION [None]
  - HYPONATRAEMIA [None]
